FAERS Safety Report 7088401-7 (Version None)
Quarter: 2010Q4

REPORT INFORMATION
  Report Type: 
  Country: None (occurrence: None)
  Receive Date: 20101108
  Receipt Date: 20101029
  Transmission Date: 20110411
  Serious: Yes (Hospitalization)
  Sender: FDA-Public Use
  Company Number: FI-MPIJNJ-2010-00884

PATIENT

DRUGS (10)
  1. VELCADE [Suspect]
     Indication: MULTIPLE MYELOMA
     Dosage: 2.8 MG, UNK
     Route: 042
     Dates: start: 20091223, end: 20100107
  2. VELCADE [Suspect]
     Dosage: 2.6 MG, CYCLIC
     Dates: start: 20100201, end: 20100204
  3. DEXAMETHASONE [Suspect]
     Indication: MULTIPLE MYELOMA
     Dosage: 40 MG, UNK
     Route: 048
     Dates: start: 20091223, end: 20100108
  4. DEXAMETHASONE [Suspect]
     Dosage: 40 UNK, UNK
     Dates: start: 20100204, end: 20100205
  5. OXYCONTIN [Concomitant]
     Dosage: 80 MG, UNK
  6. OXYCODONE HCL [Concomitant]
     Dosage: 10 MG, UNK
  7. KALCIPOS [Concomitant]
  8. ACYCLOVIR [Concomitant]
     Dosage: 400 MG, UNK
  9. KALINORM [Concomitant]
  10. COTRIM FORTE EU RHO [Concomitant]
     Dosage: 1 DF, UNK

REACTIONS (2)
  - CLOSTRIDIUM DIFFICILE COLITIS [None]
  - INFECTION [None]
